FAERS Safety Report 24396725 (Version 6)
Quarter: 2025Q2

REPORT INFORMATION
  Report Type: Spontaneous
  Country: US (occurrence: None)
  Receive Date: 20241004
  Receipt Date: 20250408
  Transmission Date: 20250716
  Serious: Yes (Hospitalization, Other)
  Sender: INCYTE
  Company Number: US-INCYTE CORPORATION-2024IN010409

PATIENT
  Age: 65 Year

DRUGS (5)
  1. JAKAFI [Suspect]
     Active Substance: RUXOLITINIB
     Indication: Myelodysplastic syndrome
     Dosage: 10 MILLIGRAM, BID
  2. JAKAFI [Suspect]
     Active Substance: RUXOLITINIB
     Dosage: 10 MILLIGRAM, BID
  3. LEVOFLOXACIN [Suspect]
     Active Substance: LEVOFLOXACIN
     Indication: Product used for unknown indication
     Route: 065
  4. VALGANCICLOVIR [Suspect]
     Active Substance: VALGANCICLOVIR
     Indication: Viral load increased
     Dosage: 900 MILLIGRAM, BID (2 X 450 MG IN MORNING, 2 X 450 MG IN EVENING)
     Route: 065
  5. PREDNISONE [Suspect]
     Active Substance: PREDNISONE
     Indication: Product used for unknown indication
     Route: 065

REACTIONS (12)
  - Serotonin syndrome [Unknown]
  - Pneumonia [Unknown]
  - Oxygen saturation decreased [Unknown]
  - Depression [Unknown]
  - Viral load increased [Unknown]
  - Decreased activity [Unknown]
  - Pain [Unknown]
  - Swollen tongue [Unknown]
  - Dysphagia [Unknown]
  - Emotional disorder [Unknown]
  - Product dose omission in error [Unknown]
  - Off label use [Unknown]
